FAERS Safety Report 8973061 (Version 1)
Quarter: 2012Q4

REPORT INFORMATION
  Report Type: 
  Country: US (occurrence: US)
  Receive Date: 20121218
  Receipt Date: 20121218
  Transmission Date: 20130627
  Serious: Yes (Other)
  Sender: FDA-Public Use
  Company Number: US-BRISTOL-MYERS SQUIBB COMPANY-16978710

PATIENT
  Sex: Female

DRUGS (3)
  1. ABILIFY TABS 5 MG [Suspect]
     Indication: MENTAL RETARDATION
     Dosage: one half an Abilify 5 mg tablet one time
  2. LAMICTAL [Suspect]
  3. SEROQUEL [Suspect]

REACTIONS (3)
  - Convulsion [Unknown]
  - Dysphagia [Not Recovered/Not Resolved]
  - Drug administration error [Unknown]
